FAERS Safety Report 6636114-5 (Version None)
Quarter: 2010Q1

REPORT INFORMATION
  Report Type: 
  Country: None (occurrence: None)
  Receive Date: 20100311
  Receipt Date: 20100304
  Transmission Date: 20100710
  Serious: No
  Sender: FDA-Public Use
  Company Number: 2010030018

PATIENT
  Age: 85 Year

DRUGS (2)
  1. ONSOLIS [Suspect]
     Dosage: BU
     Route: 002
  2. DURAGESIC-100 [Concomitant]

REACTIONS (2)
  - DRUG PRESCRIBING ERROR [None]
  - INTERCEPTED MEDICATION ERROR [None]
